FAERS Safety Report 7409638-0 (Version None)
Quarter: 2011Q2

REPORT INFORMATION
  Report Type: 
  Country: None (occurrence: None)
  Receive Date: 20110412
  Receipt Date: 20110404
  Transmission Date: 20111010
  Serious: No
  Sender: FDA-Public Use
  Company Number: US-ROXANE LABORATORIES, INC.-2011-RO-00453RO

PATIENT
  Sex: Female

DRUGS (3)
  1. PREVACID [Suspect]
     Dosage: 7.5 MG
     Route: 048
  2. SODIUM BICARBONATE [Suspect]
  3. DEXAMETHASONE [Suspect]

REACTIONS (1)
  - FLUID RETENTION [None]
